FAERS Safety Report 7741908-9 (Version None)
Quarter: 2011Q3

REPORT INFORMATION
  Report Type: 
  Country: None (occurrence: None)
  Receive Date: 20110907
  Receipt Date: 20110907
  Transmission Date: 20111222
  Serious: Yes (Life-Threatening, Hospitalization)
  Sender: FDA-Public Use
  Company Number: None

PATIENT
  Sex: Female
  Weight: 102.5129 kg

DRUGS (10)
  1. RABEPRAZOLE SODIUM [Concomitant]
  2. VIT D3 [Concomitant]
  3. LEVOTHYROXINE SODIUM [Concomitant]
  4. LYRICA [Concomitant]
  5. VIT C [Concomitant]
  6. HYDROCODONE BITARTRATE AND ACETAMINOPHEN [Concomitant]
  7. RECLAST [Suspect]
     Indication: OSTEOPOROSIS
     Dosage: 5MG/100ML ONCE ANNUALLY IV
     Route: 042
     Dates: start: 20100501, end: 20110603
  8. PROZAC [Concomitant]
  9. AMBIEN [Concomitant]
  10. VITAMIN B-12 [Concomitant]

REACTIONS (3)
  - HEAD INJURY [None]
  - SUBDURAL HAEMATOMA [None]
  - FALL [None]
